FAERS Safety Report 6388148-6 (Version None)
Quarter: 2009Q4

REPORT INFORMATION
  Report Type: 
  Country: None (occurrence: None)
  Receive Date: 20091005
  Receipt Date: 20090921
  Transmission Date: 20100525
  Serious: Yes (Death, Other)
  Sender: FDA-Public Use
  Company Number: GB-MYLANLABS-2009S1016734

PATIENT
  Age: 82 Year
  Sex: Female

DRUGS (5)
  1. CO-AMILOFRUSE [Suspect]
     Indication: DRUG USE FOR UNKNOWN INDICATION
  2. IBUPROFEN [Suspect]
     Route: 048
  3. ASPIRIN [Suspect]
     Indication: DRUG USE FOR UNKNOWN INDICATION
  4. CALCICHEW D3 [Suspect]
     Indication: DRUG USE FOR UNKNOWN INDICATION
  5. CO-CODAMOL [Suspect]
     Indication: INTENTIONAL OVERDOSE

REACTIONS (6)
  - ALANINE AMINOTRANSFERASE INCREASED [None]
  - BLOOD ALKALINE PHOSPHATASE INCREASED [None]
  - CARDIAC ARREST [None]
  - INTENTIONAL OVERDOSE [None]
  - SUICIDE ATTEMPT [None]
  - VASCULAR ANOMALY [None]
